FAERS Safety Report 6344162-8 (Version None)
Quarter: 2009Q3

REPORT INFORMATION
  Report Type: 
  Country: None (occurrence: None)
  Receive Date: 20090903
  Receipt Date: 20090903
  Transmission Date: 20100115
  Serious: Yes (Hospitalization)
  Sender: FDA-Public Use
  Company Number: None

PATIENT
  Sex: Male
  Weight: 54.5 kg

DRUGS (3)
  1. CARBOPLATIN [Suspect]
     Dosage: 563 MG
  2. ERBITUX [Suspect]
     Dosage: 425 MG
  3. PACLITAXEL [Suspect]
     Dosage: 255 MG

REACTIONS (5)
  - CEREBROVASCULAR ACCIDENT [None]
  - ENDOCARDITIS [None]
  - MITRAL VALVE DISEASE [None]
  - PANCYTOPENIA [None]
  - PNEUMONIA [None]
